FAERS Safety Report 5103463-1 (Version None)
Quarter: 2006Q3

REPORT INFORMATION
  Report Type: 
  Country: None (occurrence: None)
  Receive Date: 20060913
  Receipt Date: 20060905
  Transmission Date: 20061208
  Serious: Yes (Death, Hospitalization)
  Sender: FDA-Public Use
  Company Number: US-JNJFOC-20060901760

PATIENT
  Age: 49 Year
  Sex: Female

DRUGS (9)
  1. ACETAMINOPHEN [Suspect]
     Route: 048
  2. ACETAMINOPHEN [Suspect]
     Indication: SUICIDE ATTEMPT
     Route: 048
  3. ACETAMINOPHEN, ASPIRIN AND CAFFEINE [Concomitant]
  4. AMOXICILLIN [Concomitant]
  5. IBUPROFEN [Concomitant]
  6. PAROXETINE HCL [Concomitant]
  7. TRAZODONE HCL [Concomitant]
  8. BUTALBITAL, ACETAMINOPHEN, CAFFEINE [Concomitant]
  9. UNSPECIFIED MEDICATIONS [Concomitant]

REACTIONS (6)
  - COMPLETED SUICIDE [None]
  - GASTROINTESTINAL HAEMORRHAGE [None]
  - HEPATIC FAILURE [None]
  - INTENTIONAL OVERDOSE [None]
  - RENAL IMPAIRMENT [None]
  - RESPIRATORY FAILURE [None]
